FAERS Safety Report 9721551 (Version 2)
Quarter: 2014Q3

REPORT INFORMATION
  Report Type: Spontaneous
  Country: MX (occurrence: MX)
  Receive Date: 20131130
  Receipt Date: 20140704
  Transmission Date: 20150326
  Serious: Yes (Other)
  Sender: FDA-Public Use
  Company Number: PHHY2013MX138712

PATIENT
  Age: 55 Year
  Sex: Male

DRUGS (2)
  1. TEGRETOL [Suspect]
     Active Substance: CARBAMAZEPINE
     Indication: CONVULSION
     Dosage: 3 DF, DAILY
     Route: 048
     Dates: start: 201211
  2. TEGRETOL [Suspect]
     Active Substance: CARBAMAZEPINE
     Indication: CONVULSION
     Dosage: 3 DF, DAILY
     Route: 048
     Dates: start: 201209

REACTIONS (2)
  - Convulsion [Unknown]
  - Nervous system disorder [Unknown]
